FAERS Safety Report 4509952-2 (Version None)
Quarter: 2004Q4

REPORT INFORMATION
  Report Type: 
  Country: None (occurrence: None)
  Receive Date: 20041124
  Receipt Date: 20041116
  Transmission Date: 20050328
  Serious: Yes (Hospitalization)
  Sender: FDA-Public Use
  Company Number: US-JNJFOC-20040402275

PATIENT
  Sex: Female
  Weight: 61.69 kg

DRUGS (22)
  1. ELMIRON [Suspect]
     Indication: CYSTITIS INTERSTITIAL
     Route: 049
  2. VICODIN [Concomitant]
  3. VICODIN [Concomitant]
  4. ROBAXIN [Concomitant]
  5. PYRIDIUM [Concomitant]
  6. METHADONE [Concomitant]
  7. AMBIEN [Concomitant]
  8. XANAX [Concomitant]
  9. XANAX [Concomitant]
  10. TRAZODONE HCL [Concomitant]
  11. ACID MEDICINE [Concomitant]
  12. OTHER MEDICATIONS [Concomitant]
  13. IBUPROFEN [Concomitant]
  14. DONNATAL [Concomitant]
  15. DONNATAL [Concomitant]
  16. DONNATAL [Concomitant]
  17. DONNATAL [Concomitant]
  18. IMODIUM [Concomitant]
  19. LEVBID [Concomitant]
  20. LIBRIUM [Concomitant]
  21. LOMOTIL [Concomitant]
  22. LOMOTIL [Concomitant]

REACTIONS (37)
  - ABDOMINAL DISCOMFORT [None]
  - ABDOMINAL PAIN [None]
  - AGITATION [None]
  - ASTHENIA [None]
  - BLADDER PAIN [None]
  - BLOOD CULTURE POSITIVE [None]
  - BLOOD THYROID STIMULATING HORMONE ABNORMAL [None]
  - CLOSTRIDIUM COLITIS [None]
  - COLITIS [None]
  - COMA [None]
  - CONSTIPATION [None]
  - DECREASED APPETITE [None]
  - DEPRESSION [None]
  - DIARRHOEA [None]
  - DRUG ABUSER [None]
  - DRUG SCREEN POSITIVE [None]
  - ENTEROBACTER INFECTION [None]
  - GASTROINTESTINAL INFECTION [None]
  - HOT FLUSH [None]
  - HYPERHIDROSIS [None]
  - HYPOKALAEMIA [None]
  - HYPOMAGNESAEMIA [None]
  - INSOMNIA [None]
  - MARKEDLY REDUCED DIETARY INTAKE [None]
  - MYDRIASIS [None]
  - NAUSEA [None]
  - OVARIAN CYST [None]
  - OVERDOSE [None]
  - PANCYTOPENIA [None]
  - PELVIC PAIN [None]
  - PYREXIA [None]
  - RESPIRATORY DEPRESSION [None]
  - SERUM FERRITIN DECREASED [None]
  - SYNCOPE [None]
  - TACHYCARDIA [None]
  - URINARY TRACT INFECTION [None]
  - WEIGHT DECREASED [None]
